FAERS Safety Report 5840142-7 (Version None)
Quarter: 2008Q3

REPORT INFORMATION
  Report Type: 
  Country: None (occurrence: None)
  Receive Date: 20080730
  Receipt Date: 20080603
  Transmission Date: 20090109
  Serious: No
  Sender: FDA-Public Use
  Company Number: PHEH2008US02413

PATIENT
  Age: 71 Year
  Sex: Female
  Weight: 59.4 kg

DRUGS (23)
  1. TEKTURNA [Suspect]
     Dosage: 150, QD
     Dates: start: 20080218, end: 20080228
  2. HYDROCHLOROTHIAZIDE [Concomitant]
  3. WARFARIN SODIUM [Concomitant]
  4. TIAZAC [Concomitant]
  5. TOPROL-XL [Concomitant]
  6. FLONASE [Concomitant]
  7. ALLEGRA [Concomitant]
  8. VITAMIN B12 [Concomitant]
  9. VITAMIN B (NO INGREDIENTS/SUBSTANCES) [Concomitant]
  10. FOLIC ACID [Concomitant]
  11. VITAMIN E [Concomitant]
  12. LOVAZA [Concomitant]
  13. SELENIUM (SELENIUM) [Concomitant]
  14. URELLE (HYOSCYAMIE SULFATE, METHENAMINE, METHYLTHIONINIUM CHLORIDE, PH [Concomitant]
  15. AMINO ACIDS (NO INGREDIENTS/SUBSTANCES) [Concomitant]
  16. DARVOCET-N 100 [Concomitant]
  17. ZETIA [Concomitant]
  18. PHENERGAN HCL [Concomitant]
  19. XANAX [Concomitant]
  20. PEPCID AC [Concomitant]
  21. GLUCOSAMINE (GLUCOSAMINE) [Concomitant]
  22. CALCIUM (CALCIUM) [Concomitant]
  23. GINKGO BILOBA (GINKGO BILOBA) [Concomitant]

REACTIONS (5)
  - BURNING SENSATION [None]
  - DIARRHOEA [None]
  - HYPERTENSION [None]
  - MALAISE [None]
  - NAUSEA [None]
